FAERS Safety Report 21473916 (Version 1)
Quarter: 2022Q4

REPORT INFORMATION
  Report Type: Report from Study
  Country: IT (occurrence: IT)
  Receive Date: 20221018
  Receipt Date: 20221018
  Transmission Date: 20230113
  Serious: Yes (Hospitalization)
  Sender: FDA-Public Use
  Company Number: IT-CELGENE-ITA-20210401783

PATIENT
  Age: 71 Year
  Sex: Female

DRUGS (29)
  1. AZACITIDINE [Suspect]
     Active Substance: AZACITIDINE
     Indication: Myelodysplastic syndrome
     Dosage: FREQUENCY TEXT: DAYS 1-5, 8 AND 9 OF EACH 28 DAY CYCLE
     Route: 058
     Dates: start: 20190225, end: 20190521
  2. AZACITIDINE [Suspect]
     Active Substance: AZACITIDINE
     Dosage: FREQUENCY TEXT: DAYS 1-5, 8 AND 9 OF EACH 28 DAY CYCLE
     Route: 058
     Dates: start: 20190624, end: 20200121
  3. AZACITIDINE [Suspect]
     Active Substance: AZACITIDINE
     Dosage: FREQUENCY TEXT: DAYS 1-5, 8 AND 9 OF EACH 28 DAY CYCLE
     Route: 058
     Dates: start: 20200420, end: 20200922
  4. VENETOCLAX [Suspect]
     Active Substance: VENETOCLAX
     Indication: Myelodysplastic syndrome
     Dosage: DAYS 1 - 14 OF EACH 28 DAY CYCLE
     Route: 048
     Dates: start: 20190225, end: 20190310
  5. VENETOCLAX [Suspect]
     Active Substance: VENETOCLAX
     Dosage: DAYS 1 - 9 OF EACH 28 DAY CYCLE
     Route: 048
     Dates: start: 20190408, end: 20190521
  6. VENETOCLAX [Suspect]
     Active Substance: VENETOCLAX
     Dosage: DAYS 1 - 9 OF EACH 28 DAY CYCLE
     Route: 048
     Dates: start: 20190624, end: 20200121
  7. VENETOCLAX [Suspect]
     Active Substance: VENETOCLAX
     Dosage: DAYS 1 -7 OF EACH 28 DAY CYCLE
     Route: 048
     Dates: start: 20200420, end: 20200920
  8. LEVOTHYROXINE SODIUM [Concomitant]
     Active Substance: LEVOTHYROXINE SODIUM
     Indication: Hypothyroidism
     Dosage: 75 MICROGRAM
     Route: 048
     Dates: start: 2002
  9. VITAMIN D3 [Concomitant]
     Active Substance: CHOLECALCIFEROL
     Indication: Osteoporosis prophylaxis
     Dosage: 35 DROPS
     Route: 048
     Dates: start: 2002
  10. ZOFRAN [Concomitant]
     Active Substance: ONDANSETRON HYDROCHLORIDE
     Indication: Prophylaxis of nausea and vomiting
     Dosage: 8 MILLIGRAM
     Route: 048
     Dates: start: 20190225
  11. MICOSTATIN [Concomitant]
     Indication: Antifungal prophylaxis
     Dosage: 4 MEASURING CUP
     Route: 002
     Dates: start: 20190405, end: 20190408
  12. MICOSTATIN [Concomitant]
     Dosage: 4 MEASURING CUP
     Route: 002
     Dates: start: 20190618
  13. CHLORHEXIDINE [Concomitant]
     Active Substance: CHLORHEXIDINE
     Indication: Infection prophylaxis
     Dosage: 4 MEASURING CUP
     Route: 002
     Dates: start: 20190618
  14. NALOXONE HYDROCHLORIDE\OXYCODONE HYDROCHLORIDE [Concomitant]
     Active Substance: NALOXONE HYDROCHLORIDE\OXYCODONE HYDROCHLORIDE
     Indication: Haematoma muscle
     Dosage: 5/2.5 MG
     Route: 048
     Dates: start: 20200615
  15. PIPERACILLIN SODIUM\TAZOBACTAM SODIUM [Concomitant]
     Active Substance: PIPERACILLIN SODIUM\TAZOBACTAM SODIUM
     Indication: Pancytopenia
     Dosage: 9 GRAM
     Route: 042
     Dates: start: 20201120
  16. PIPERACILLIN SODIUM\TAZOBACTAM SODIUM [Concomitant]
     Active Substance: PIPERACILLIN SODIUM\TAZOBACTAM SODIUM
     Indication: Febrile neutropenia
     Dosage: FREQUENCY TEXT: NOT PROVIDED
     Route: 065
     Dates: start: 20191110, end: 20191115
  17. PIPERACILLIN SODIUM\TAZOBACTAM SODIUM [Concomitant]
     Active Substance: PIPERACILLIN SODIUM\TAZOBACTAM SODIUM
     Indication: Pyrexia
     Dosage: 18 GRAM
     Route: 042
     Dates: start: 20200209, end: 20200210
  18. PIPERACILLIN SODIUM\TAZOBACTAM SODIUM [Concomitant]
     Active Substance: PIPERACILLIN SODIUM\TAZOBACTAM SODIUM
     Indication: Fungal infection
     Dosage: 18 GRAM
     Route: 042
     Dates: start: 20200703, end: 20200720
  19. PIPERACILLIN SODIUM\TAZOBACTAM SODIUM [Concomitant]
     Active Substance: PIPERACILLIN SODIUM\TAZOBACTAM SODIUM
     Dosage: 72 GRAM
     Route: 042
     Dates: start: 20201120, end: 20201208
  20. PIPERACILLIN SODIUM\TAZOBACTAM SODIUM [Concomitant]
     Active Substance: PIPERACILLIN SODIUM\TAZOBACTAM SODIUM
     Dosage: 4.5 GRAM
     Route: 040
     Dates: start: 20201209, end: 20201209
  21. PIPERACILLIN SODIUM\TAZOBACTAM SODIUM [Concomitant]
     Active Substance: PIPERACILLIN SODIUM\TAZOBACTAM SODIUM
     Dosage: 18 GRAM
     Route: 041
     Dates: start: 20201209, end: 20201210
  22. DIFLUCAN [Concomitant]
     Active Substance: FLUCONAZOLE
     Indication: Antifungal prophylaxis
     Dosage: 200 MILLIGRAM
     Route: 048
     Dates: start: 20190328, end: 20190405
  23. DIFLUCAN [Concomitant]
     Active Substance: FLUCONAZOLE
     Indication: Pyrexia
     Dosage: 100 MILLIGRAM
     Route: 048
     Dates: start: 20201120
  24. ACYCLOVIR [Concomitant]
     Active Substance: ACYCLOVIR
     Indication: Ophthalmic herpes simplex
     Dosage: 10000 MILLIGRAM
     Route: 048
     Dates: start: 20201201, end: 20201209
  25. ACYCLOVIR [Concomitant]
     Active Substance: ACYCLOVIR
     Dosage: 1200 MILLIGRAM
     Route: 048
     Dates: start: 20201210
  26. Trimetom [Concomitant]
     Indication: Allergy prophylaxis
     Dosage: FREQUENCY TEXT: NOT PROVIDED
     Route: 042
     Dates: start: 20201102
  27. Trimetom [Concomitant]
     Dosage: 1 GRAM
     Route: 030
     Dates: start: 20201204, end: 20201204
  28. METHYLPREDNISOLONE [Concomitant]
     Active Substance: METHYLPREDNISOLONE
     Indication: Allergy prophylaxis
     Dosage: FREQUENCY TEXT: NOT PROVIDED
     Route: 042
     Dates: start: 20201102
  29. METHYLPREDNISOLONE [Concomitant]
     Active Substance: METHYLPREDNISOLONE
     Dosage: 40 MILLIGRAM
     Route: 030
     Dates: start: 20201204, end: 20201204

REACTIONS (1)
  - Heart rate increased [Recovered/Resolved]

NARRATIVE: CASE EVENT DATE: 20210327
